FAERS Safety Report 5081881-8 (Version None)
Quarter: 2006Q3

REPORT INFORMATION
  Report Type: 
  Country: None (occurrence: None)
  Receive Date: 20060816
  Receipt Date: 20060811
  Transmission Date: 20061208
  Serious: Yes (Death)
  Sender: FDA-Public Use
  Company Number: 2006UW16057

PATIENT
  Age: 36 Year
  Sex: Female
  Weight: 87.1 kg

DRUGS (17)
  1. SEROQUEL [Suspect]
     Indication: BIPOLAR DISORDER
     Route: 048
     Dates: start: 20060418
  2. SEROQUEL [Suspect]
     Indication: DEPRESSION
     Route: 048
     Dates: start: 20060418
  3. SEROQUEL [Suspect]
     Route: 048
     Dates: start: 20030401, end: 20060418
  4. SEROQUEL [Suspect]
     Route: 048
     Dates: start: 20030401, end: 20060418
  5. SEROQUEL [Suspect]
     Route: 048
     Dates: start: 20020701
  6. SEROQUEL [Suspect]
     Route: 048
     Dates: start: 20020701
  7. SEROQUEL [Suspect]
     Route: 048
     Dates: start: 20020601
  8. SEROQUEL [Suspect]
     Route: 048
     Dates: start: 20020601
  9. IMIPRAMINE [Concomitant]
  10. TRANZADINE [Concomitant]
  11. GABAPENTIN [Concomitant]
  12. NEURONTIN [Concomitant]
  13. WELLBUTRIN [Concomitant]
  14. DIAZEPAM [Concomitant]
  15. METHADONE HCL [Concomitant]
  16. LEVOXYL [Concomitant]
  17. METFORMIN [Concomitant]

REACTIONS (3)
  - DEATH [None]
  - DRUG TOXICITY [None]
  - HEPATIC STEATOSIS [None]
